FAERS Safety Report 10381427 (Version 1)
Quarter: 2014Q3

REPORT INFORMATION
  Report Type: Spontaneous
  Country: US (occurrence: None)
  Receive Date: 20140812
  Receipt Date: 20140812
  Transmission Date: 20150326
  Serious: Yes (Life-Threatening)
  Sender: FDA-Public Use
  Company Number: None

PATIENT
  Age: 68 Year
  Sex: Male
  Weight: 83.2 kg

DRUGS (1)
  1. HEPARIN [Suspect]
     Active Substance: HEPARIN SODIUM
     Indication: THROMBOSIS PROPHYLAXIS
     Dosage: OTHER
     Route: 058
     Dates: start: 20140130, end: 20140214

REACTIONS (2)
  - Thrombocytopenia [None]
  - Heparin-induced thrombocytopenia test positive [None]

NARRATIVE: CASE EVENT DATE: 20140212
